FAERS Safety Report 15692010 (Version 1)
Quarter: 2018Q4

REPORT INFORMATION
  Report Type: Spontaneous
  Country: PT (occurrence: PT)
  Receive Date: 20181205
  Receipt Date: 20181205
  Transmission Date: 20190205
  Serious: Yes (Other)
  Sender: FDA-Public Use
  Company Number: PT-SHIRE-PT201846263

PATIENT

DRUGS (5)
  1. 476 (MESALAZINE/MESALAMINE) [Suspect]
     Active Substance: MESALAMINE
     Indication: COLITIS ULCERATIVE
     Dosage: 3 G, 1X/DAY:QD
     Route: 048
     Dates: start: 201411
  2. 476 (MESALAZINE/MESALAMINE) [Suspect]
     Active Substance: MESALAMINE
     Dosage: 4 G, 1X/DAY:QD
     Route: 048
  3. ETROLIZUMAB. [Concomitant]
     Active Substance: ETROLIZUMAB
     Indication: COLITIS ULCERATIVE
  4. ADALIMUMAB [Concomitant]
     Active Substance: ADALIMUMAB
     Indication: COLITIS ULCERATIVE
  5. INFLIXIMAB [Concomitant]
     Active Substance: INFLIXIMAB
     Indication: COLITIS ULCERATIVE

REACTIONS (2)
  - Drug effect decreased [Unknown]
  - Organising pneumonia [Recovered/Resolved]
